FAERS Safety Report 9004679 (Version 1)
Quarter: 2013Q1

REPORT INFORMATION
  Report Type: Spontaneous
  Country: US (occurrence: US)
  Receive Date: 20130109
  Receipt Date: 20130109
  Transmission Date: 20140127
  Serious: No
  Sender: FDA-Public Use
  Company Number: US-PFIZER INC-2013005168

PATIENT
  Age: 38 Year
  Sex: Female
  Weight: 72.56 kg

DRUGS (6)
  1. NEURONTIN [Suspect]
     Indication: JUVENILE IDIOPATHIC ARTHRITIS
     Dosage: UNK
  2. NEURONTIN [Suspect]
     Indication: RHEUMATOID ARTHRITIS
  3. NEURONTIN [Suspect]
     Indication: FIBROMYALGIA
  4. XANAX [Concomitant]
     Dosage: UNK
  5. HYDROMORPHONE [Concomitant]
     Dosage: UNK
  6. OXYCODONE [Concomitant]
     Dosage: UNK

REACTIONS (3)
  - Off label use [Unknown]
  - Inappropriate schedule of drug administration [Unknown]
  - Drug ineffective for unapproved indication [Unknown]
